FAERS Safety Report 25065154 (Version 1)
Quarter: 2025Q1

REPORT INFORMATION
  Report Type: Spontaneous
  Country: CA (occurrence: CA)
  Receive Date: 20250311
  Receipt Date: 20250311
  Transmission Date: 20250408
  Serious: Yes (Other)
  Sender: NOVARTIS
  Company Number: CA-002147023-PHHY2018CA095561

PATIENT
  Age: 15 Year
  Sex: Female

DRUGS (2)
  1. TRAMETINIB [Suspect]
     Active Substance: TRAMETINIB
     Indication: Astrocytoma, low grade
     Dosage: 0.021 MG/KG, QD (1 MG DOSE ALTERNATING WITH 0.5 MG DOSE EVERY OTHER DAY)
     Route: 065
  2. TRAMETINIB [Suspect]
     Active Substance: TRAMETINIB
     Dosage: 0.014 MG/KG, QD
     Route: 065

REACTIONS (3)
  - Paronychia [Unknown]
  - Product use in unapproved indication [Unknown]
  - Product use issue [Unknown]
